FAERS Safety Report 18886055 (Version 1)
Quarter: 2021Q1

REPORT INFORMATION
  Report Type: Spontaneous
  Country: US (occurrence: US)
  Receive Date: 20210212
  Receipt Date: 20210212
  Transmission Date: 20210420
  Serious: Yes (Other)
  Sender: FDA-Public Use
  Company Number: US-AMNEAL PHARMACEUTICALS-2021-AMRX-00305

PATIENT
  Sex: Male

DRUGS (1)
  1. OFLOXACIN. [Suspect]
     Active Substance: OFLOXACIN
     Indication: PRODUCT USED FOR UNKNOWN INDICATION
     Dosage: 5 DROP, 4 /DAY
     Route: 001
     Dates: start: 20210129

REACTIONS (3)
  - Musculoskeletal stiffness [Unknown]
  - Chills [Unknown]
  - Diastolic hypotension [Unknown]

NARRATIVE: CASE EVENT DATE: 202101
